FAERS Safety Report 6686249-6 (Version None)
Quarter: 2010Q2

REPORT INFORMATION
  Report Type: 
  Country: None (occurrence: None)
  Receive Date: 20100419
  Receipt Date: 20100406
  Transmission Date: 20101027
  Serious: Yes (Other)
  Sender: FDA-Public Use
  Company Number: IE-AMGEN-US400566

PATIENT
  Sex: Female
  Weight: 57 kg

DRUGS (5)
  1. ENBREL [Suspect]
     Indication: DRUG USE FOR UNKNOWN INDICATION
     Route: 058
     Dates: start: 20100309, end: 20100312
  2. YASMIN [Concomitant]
     Indication: MENSTRUATION IRREGULAR
     Dosage: DOSE UNSPECIFIED, DAILY
     Route: 048
  3. FOLIC ACID [Concomitant]
     Indication: PSORIASIS
     Route: 048
     Dates: start: 20091117
  4. METHOTREXATE [Concomitant]
     Indication: PSORIASIS
     Route: 048
     Dates: start: 20091117
  5. CYCLOSPORINE [Concomitant]
     Indication: PSORIASIS
     Dosage: 100 - 250MG, DAILY
     Route: 048
     Dates: start: 20091020, end: 20100302

REACTIONS (3)
  - DYSPHAGIA [None]
  - SWELLING FACE [None]
  - URTICARIA [None]
